FAERS Safety Report 9571183 (Version 1)
Quarter: 2013Q4

REPORT INFORMATION
  Report Type: Report from Study
  Country: CA (occurrence: CA)
  Receive Date: 20131001
  Receipt Date: 20131001
  Transmission Date: 20140711
  Serious: Yes (Death)
  Sender: FDA-Public Use
  Company Number: PHHY2013CA109054

PATIENT
  Sex: Female

DRUGS (4)
  1. ACLASTA [Suspect]
     Indication: OSTEOPOROSIS
     Dosage: UNK
     Route: 042
     Dates: start: 20080924
  2. ACLASTA [Suspect]
     Dosage: UNK
     Route: 042
     Dates: start: 20091221
  3. ACLASTA [Suspect]
     Dosage: UNK
     Route: 042
     Dates: start: 20101019
  4. ACLASTA [Suspect]
     Dosage: UNK
     Route: 042
     Dates: start: 20121017

REACTIONS (2)
  - Death [Fatal]
  - Inappropriate schedule of drug administration [Unknown]
